FAERS Safety Report 4754721-1 (Version None)
Quarter: 2005Q3

REPORT INFORMATION
  Report Type: 
  Country: None (occurrence: None)
  Receive Date: 20050829
  Receipt Date: 20050818
  Transmission Date: 20060218
  Serious: Yes (Hospitalization)
  Sender: FDA-Public Use
  Company Number: 200517398GDDC

PATIENT
  Age: 99 Year
  Sex: 0
  Weight: 111 kg

DRUGS (6)
  1. DOCETAXEL [Suspect]
     Indication: OESOPHAGEAL CARCINOMA
     Route: 042
     Dates: start: 20050810, end: 20050810
  2. CAPECITABINE [Suspect]
     Indication: OESOPHAGEAL CARCINOMA
     Dates: start: 20050810
  3. ZOLOFT [Concomitant]
     Route: 048
     Dates: start: 20000101
  4. LITHIUM [Concomitant]
     Route: 048
     Dates: start: 20000101
  5. ATORVASTATIN [Concomitant]
     Route: 048
     Dates: start: 20020101
  6. RAMIPRIL [Concomitant]
     Route: 048
     Dates: start: 20020101

REACTIONS (2)
  - HYPERGLYCAEMIA [None]
  - PYREXIA [None]
